FAERS Safety Report 8668428 (Version 2)
Quarter: 2012Q4

REPORT INFORMATION
  Report Type: 
  Country: JP (occurrence: JP)
  Receive Date: 20120717
  Receipt Date: 20121127
  Transmission Date: 20130627
  Serious: Yes (Life-Threatening)
  Sender: FDA-Public Use
  Company Number: JP-ASTRAZENECA-2012SE48017

PATIENT
  Age: 81 Year
  Sex: Male
  Weight: 64 kg

DRUGS (7)
  1. XYLOCAINE [Suspect]
     Indication: EPIDURAL ANAESTHESIA
     Dosage: 2 x105 folding diluted adrenaline: 4 mL
     Route: 008
  2. DIPRIVAN [Suspect]
     Indication: INDUCTION AND MAINTENANCE OF ANAESTHESIA
     Dosage: At induction: 80 mg At maintenance: 5 mg/kg/hr
     Route: 042
  3. ANAPEINE [Suspect]
     Indication: ANALGESIC THERAPY
     Dosage: 2 MG/ML,100 mL of Anapeine (ropivacaine hydrochloride hydrate) was administered by 4mL/hr
     Route: 008
  4. FENTANYL [Concomitant]
     Dosage: 100 mcg at induction,400 mcg of fentanyl was administered by 4 mL/hr
     Route: 042
  5. ROCURONIUM BROMIDE [Concomitant]
     Indication: HYPOTONIA
     Dosage: At induction: 40 mg
     Route: 042
  6. ROCURONIUM BROMIDE [Concomitant]
     Indication: HYPOTONIA
     Dosage: At maintenance: 0.4 mg/kg/hr
     Route: 042
  7. DROPERIDOL [Concomitant]
     Indication: ANALGESIC THERAPY
     Dosage: 2.5 mg of droperidol was administered by 4 mL/hr
     Route: 008

REACTIONS (1)
  - Bundle branch block left [Unknown]
